FAERS Safety Report 9135239 (Version 1)
Quarter: 2013Q1

REPORT INFORMATION
  Report Type: Spontaneous
  Country: US (occurrence: US)
  Receive Date: 20130304
  Receipt Date: 20130304
  Transmission Date: 20140127
  Serious: No
  Sender: FDA-Public Use
  Company Number: US-ALLERGAN-1214220US

PATIENT
  Age: 40 Year
  Sex: Female

DRUGS (3)
  1. TAZORAC [Suspect]
     Indication: ACNE
     Dosage: APPLY TO FACE QHS
     Route: 061
  2. TAZORAC [Suspect]
     Dosage: APPLY TO FACE QHS
     Route: 061
     Dates: start: 201110, end: 201210
  3. TAZORAC [Suspect]
     Dosage: APPLY TO FACE QHS
     Route: 061
     Dates: start: 200509, end: 200609

REACTIONS (2)
  - Application site dryness [Recovered/Resolved]
  - Drug ineffective [Unknown]
